FAERS Safety Report 24695729 (Version 1)
Quarter: 2024Q4

REPORT INFORMATION
  Report Type: Spontaneous
  Country: US (occurrence: US)
  Receive Date: 20241204
  Receipt Date: 20241204
  Transmission Date: 20250115
  Serious: No
  Sender: LEO PHARM
  Company Number: US-LEO Pharma-375645

PATIENT
  Age: 30 Year
  Sex: Female

DRUGS (1)
  1. ADBRY [Suspect]
     Active Substance: TRALOKINUMAB-LDRM
     Indication: Dermatitis atopic
     Dosage: TREATMENT IS ONGOING
     Dates: start: 202207

REACTIONS (5)
  - Pruritus [Unknown]
  - Eczema [Unknown]
  - Swelling [Unknown]
  - Skin exfoliation [Unknown]
  - Erythema [Unknown]
